FAERS Safety Report 8046088-0 (Version None)
Quarter: 2012Q1

REPORT INFORMATION
  Report Type: 
  Country: None (occurrence: None)
  Receive Date: 20120113
  Receipt Date: 20120109
  Transmission Date: 20120608
  Serious: No
  Sender: FDA-Public Use
  Company Number: US-PFIZER INC-2012007614

PATIENT
  Sex: Male
  Weight: 102 kg

DRUGS (6)
  1. AMLODIPINE [Concomitant]
     Indication: ATRIAL FIBRILLATION
     Dosage: 10 MG, DAILY
  2. LYRICA [Suspect]
     Indication: BACK DISORDER
  3. BENICAR [Concomitant]
     Indication: ATRIAL FIBRILLATION
     Dosage: 20 MG, DAILY
     Route: 048
  4. VIMOVO [Suspect]
     Indication: PSORIATIC ARTHROPATHY
  5. LYRICA [Suspect]
     Indication: PSORIATIC ARTHROPATHY
     Dosage: 75 MG, 2X/DAY
     Route: 048
     Dates: start: 20110901
  6. VIMOVO [Suspect]
     Indication: BACK DISORDER
     Dosage: 500/20 MG, 2X/DAY
     Route: 048
     Dates: start: 20110901

REACTIONS (2)
  - SOMNOLENCE [None]
  - FATIGUE [None]
